FAERS Safety Report 7603138-0 (Version None)
Quarter: 2011Q3

REPORT INFORMATION
  Report Type: 
  Country: None (occurrence: None)
  Receive Date: 20110711
  Receipt Date: 20110711
  Transmission Date: 20111222
  Serious: No
  Sender: FDA-Public Use
  Company Number: None

PATIENT
  Age: 66 Year
  Sex: Male

DRUGS (8)
  1. METOCLOPRAMIDE [Concomitant]
  2. ATENOLOL [Concomitant]
  3. REVLIMID [Suspect]
     Indication: MULTIPLE MYELOMA
     Dosage: 15MG QD X 14D ORALLY
     Route: 048
  4. ASPIRIN [Concomitant]
  5. ZOLPIDEM [Concomitant]
  6. MELPHALAN HYDROCHLORIDE [Concomitant]
  7. WARFARIN SODIUM [Concomitant]
  8. LOVASTATIN [Concomitant]

REACTIONS (2)
  - THROMBOCYTOPENIA [None]
  - NEUTROPENIA [None]
